FAERS Safety Report 6246230-8 (Version None)
Quarter: 2009Q2

REPORT INFORMATION
  Report Type: 
  Country: None (occurrence: None)
  Receive Date: 20090626
  Receipt Date: 20090617
  Transmission Date: 20091009
  Serious: Yes (Other)
  Sender: FDA-Public Use
  Company Number: CA-BAXTER-2009BH008282

PATIENT
  Age: 93 Year
  Sex: Female

DRUGS (2)
  1. GAMMAGARD LIQUID [Suspect]
     Indication: THROMBOCYTOPENIA
     Route: 042
     Dates: start: 20090426, end: 20090426
  2. ATIVAN [Concomitant]
     Dates: start: 20090426

REACTIONS (6)
  - DRUG INTOLERANCE [None]
  - LOCAL REACTION [None]
  - MUSCLE SPASMS [None]
  - PYREXIA [None]
  - TREMOR [None]
  - UNRESPONSIVE TO STIMULI [None]
